FAERS Safety Report 20247921 (Version 7)
Quarter: 2022Q3

REPORT INFORMATION
  Report Type: Report from Study
  Country: IT (occurrence: IT)
  Receive Date: 20211229
  Receipt Date: 20220708
  Transmission Date: 20221027
  Serious: Yes (Hospitalization, Other)
  Sender: FDA-Public Use
  Company Number: IT-ROCHE-2958364

PATIENT
  Age: 74 Year
  Sex: Female
  Weight: 46 kg

DRUGS (73)
  1. PREDNISONE [Suspect]
     Active Substance: PREDNISONE
     Indication: Diffuse large B-cell lymphoma
     Dosage: 100 MILLIGRAM,ON 09/NOV/2021, SHE RECEIVED
     Route: 048
     Dates: start: 20211016
  2. PREDNISONE [Suspect]
     Active Substance: PREDNISONE
     Dosage: MOST RECENT DOSE OF STUDY PREDNISONE PRIOR TO AE
     Route: 065
     Dates: start: 20211109
  3. CYCLOPHOSPHAMIDE [Suspect]
     Active Substance: CYCLOPHOSPHAMIDE
     Indication: Diffuse large B-cell lymphoma
     Dosage: 750 MILLIGRAM/SQ. METER, Q3W,ON 05/NOV/2021,SHE RECEIVED
     Route: 042
     Dates: start: 20211015
  4. CYCLOPHOSPHAMIDE [Suspect]
     Active Substance: CYCLOPHOSPHAMIDE
     Dosage: 750 MG/M2, PRIOR TO SERIOUS ADVERSE EVENT
     Route: 065
     Dates: start: 20211105
  5. VINCRISTINE [Suspect]
     Active Substance: VINCRISTINE
     Indication: Diffuse large B-cell lymphoma
     Dosage: 2.8 MILLIGRAM/SQ. METER, Q3W,ON 05/NOV/2021, SHE
     Route: 042
     Dates: start: 20211015
  6. VINCRISTINE [Suspect]
     Active Substance: VINCRISTINE
     Dosage: 1.4 MG/M2, PRIOR TO SERIOUS ADVERSE EVENT
     Route: 065
     Dates: start: 20211105
  7. RITUXIMAB [Suspect]
     Active Substance: RITUXIMAB
     Indication: Diffuse large B-cell lymphoma
     Dosage: 375 MILLIGRAM/SQ. METER, Q3W,ON 05/NOV/2021, SHE RECEIVED
     Route: 041
     Dates: start: 20211015
  8. RITUXIMAB [Suspect]
     Active Substance: RITUXIMAB
     Dosage: 375 MG/M2, PRIOR TO SERIOUS ADVERSE EVENT
     Route: 065
     Dates: start: 20211105
  9. DOXORUBICIN [Suspect]
     Active Substance: DOXORUBICIN
     Indication: Diffuse large B-cell lymphoma
     Dosage: 50 MILLIGRAM/SQ. METER, Q3W,ON 05/NOV/2021, SHE RECEIVED
     Route: 042
     Dates: start: 20211015
  10. DOXORUBICIN [Suspect]
     Active Substance: DOXORUBICIN
     Dosage: 50 MG/M2, PRIOR TO SERIOUS ADVERSE EVENT
     Route: 065
     Dates: start: 20211105
  11. METHYLPREDNISOLONE [Suspect]
     Active Substance: METHYLPREDNISOLONE
     Indication: Premedication
     Dosage: 80 MILLIGRAM
     Route: 042
     Dates: start: 20211105, end: 20211105
  12. METHYLPREDNISOLONE [Suspect]
     Active Substance: METHYLPREDNISOLONE
     Indication: Diffuse large B-cell lymphoma
     Dosage: 80 MILLIGRAM(GIVEN FOR PROPHYLAXIS)
     Route: 042
     Dates: start: 20211015, end: 20211015
  13. METHYLPREDNISOLONE [Suspect]
     Active Substance: METHYLPREDNISOLONE
     Dosage: 80 MILLIGRAM/03-DEC-2021
     Route: 042
     Dates: end: 20211203
  14. METHYLPREDNISOLONE [Suspect]
     Active Substance: METHYLPREDNISOLONE
     Dosage: UNK
     Route: 065
  15. METHYLPREDNISOLONE [Suspect]
     Active Substance: METHYLPREDNISOLONE
     Dosage: 80 MILLIGRAM(ONGOING:NOGIVEN FOR PROPHYLAXIS:YES)/24-DEC-2021
     Route: 042
     Dates: end: 20211224
  16. GLOFITAMAB [Suspect]
     Active Substance: GLOFITAMAB
     Indication: Diffuse large B-cell lymphoma
     Dosage: 1.2 MILLIGRAM, 3XW,ON 12/NOV/2021, SHE RECEIVED MOS
     Route: 065
     Dates: start: 20211112
  17. GLOFITAMAB [Suspect]
     Active Substance: GLOFITAMAB
     Dosage: UNK
     Route: 065
  18. ACETAMINOPHEN [Concomitant]
     Active Substance: ACETAMINOPHEN
     Indication: Premedication
     Dosage: 1000 MILLIGRAM(GIVEN FOR PROPHYLAXIS)
     Route: 048
     Dates: start: 20211015, end: 20211015
  19. ACETAMINOPHEN [Concomitant]
     Active Substance: ACETAMINOPHEN
     Dosage: 1000 MILLIGRAM
     Route: 048
     Dates: start: 20211112, end: 20211112
  20. ACETAMINOPHEN [Concomitant]
     Active Substance: ACETAMINOPHEN
     Dosage: 1000 MILLIGRAM/23-NOV-2021
     Route: 048
     Dates: end: 20211123
  21. ACETAMINOPHEN [Concomitant]
     Active Substance: ACETAMINOPHEN
     Dosage: 1000 MILLIGRAM
     Route: 048
     Dates: start: 20211105, end: 20211105
  22. ACETAMINOPHEN [Concomitant]
     Active Substance: ACETAMINOPHEN
     Dosage: 1000 MILLIGRAM/03-DEC-2021
     Route: 048
     Dates: end: 20211203
  23. ACETAMINOPHEN [Concomitant]
     Active Substance: ACETAMINOPHEN
     Dosage: 1000 MILLIGRAM(ONGOING NOGIVEN FOR PROPHYLAXIS YES)/24-DEC-2021
     Route: 048
     Dates: end: 20211224
  24. ACETAMINOPHEN [Concomitant]
     Active Substance: ACETAMINOPHEN
     Dosage: 1000 MILLIGRAM(ONGOING NOGIVEN FOR PROPHYLAXIS YES)/31-DEC-2021
     Route: 048
     Dates: end: 20211231
  25. ACETAMINOPHEN [Concomitant]
     Active Substance: ACETAMINOPHEN
     Dosage: 1000 MILLIGRAM(ONGOING NOGIVEN FOR PROPHYLAXIS YES)/10-DEC-2021
     Route: 048
     Dates: end: 20211210
  26. ACETAMINOPHEN [Concomitant]
     Active Substance: ACETAMINOPHEN
     Dosage: 1000 MILLIGRAM(ONGOING NOGIVEN FOR PROPHYLAXIS YES)/14-JAN-2022
     Route: 048
     Dates: end: 20220114
  27. ACETAMINOPHEN [Concomitant]
     Active Substance: ACETAMINOPHEN
     Dosage: 1000 MILLIGRAM(ONGOING NOGIVEN FOR PROPHYLAXIS YES)/21-JAN-2022
     Route: 048
     Dates: end: 20220121
  28. ACETAMINOPHEN [Concomitant]
     Active Substance: ACETAMINOPHEN
     Dosage: 1000 MILLIGRAM/04-MAR-2022
     Route: 065
     Dates: end: 20220304
  29. ACETAMINOPHEN [Concomitant]
     Active Substance: ACETAMINOPHEN
     Dosage: 1000 MILLIGRAM(ONGOING NOGIVEN FOR PROPHYLAXIS YES)/10-DEC-2021
     Route: 065
     Dates: end: 20211210
  30. ACETAMINOPHEN [Concomitant]
     Active Substance: ACETAMINOPHEN
     Dosage: 1000 MILLIGRAM/25-FEB-2022
     Route: 065
     Dates: end: 20220225
  31. DEXAMETHASONE [Concomitant]
     Active Substance: DEXAMETHASONE
     Indication: Cytokine release syndrome
     Dosage: 20 MILLIGRAM
     Route: 042
     Dates: start: 20211112, end: 20211112
  32. DEXAMETHASONE [Concomitant]
     Active Substance: DEXAMETHASONE
     Indication: Prophylaxis
     Dosage: 24-NOV-2021
     Route: 065
     Dates: end: 20211124
  33. DEXAMETHASONE [Concomitant]
     Active Substance: DEXAMETHASONE
     Dosage: 20 MILLIGRAM/23-NOV-2021
     Route: 042
     Dates: end: 20211123
  34. DEXAMETHASONE [Concomitant]
     Active Substance: DEXAMETHASONE
     Dosage: 20 MILLIGRAM(ONGOING: NOGIVEN FOR PROPHYLAXIS: YES)/10-DEC-2021
     Route: 042
     Dates: end: 20211210
  35. DEXAMETHASONE [Concomitant]
     Active Substance: DEXAMETHASONE
     Dosage: 20 MILLIGRAM(ONGOING: NOGIVEN FOR PROPHYLAXIS: YES)/31-DEC-2021
     Route: 042
     Dates: end: 20211231
  36. DEXAMETHASONE [Concomitant]
     Active Substance: DEXAMETHASONE
     Dosage: 20 MILLIGRAM(ONGOING: NOGIVEN FOR PROPHYLAXIS:YES)/21-JAN-2022
     Route: 042
     Dates: end: 20220121
  37. DEXAMETHASONE [Concomitant]
     Active Substance: DEXAMETHASONE
     Dosage: 20 MILLIGRAM/04-MAR-2022
     Route: 065
     Dates: end: 20220304
  38. CHLORPHENIRAMINE MALEATE [Concomitant]
     Active Substance: CHLORPHENIRAMINE MALEATE
     Indication: Premedication
     Dosage: 10 MILLIGRAM
     Route: 042
     Dates: start: 20211105, end: 20211105
  39. CHLORPHENIRAMINE MALEATE [Concomitant]
     Active Substance: CHLORPHENIRAMINE MALEATE
     Dosage: 10 MILLIGRAM/23-NOV-2021
     Route: 042
     Dates: end: 20211123
  40. CHLORPHENIRAMINE MALEATE [Concomitant]
     Active Substance: CHLORPHENIRAMINE MALEATE
     Dosage: 10 MILLIGRAM(GIVEN FOR PROPHYLAXIS)
     Route: 042
     Dates: start: 20211015, end: 20211015
  41. CHLORPHENIRAMINE MALEATE [Concomitant]
     Active Substance: CHLORPHENIRAMINE MALEATE
     Dosage: 10 MILLIGRAM
     Route: 042
     Dates: start: 20211112, end: 20211112
  42. CHLORPHENIRAMINE MALEATE [Concomitant]
     Active Substance: CHLORPHENIRAMINE MALEATE
     Dosage: 10 MILLIGRAM/03-DEC-2021
     Route: 042
     Dates: end: 20211203
  43. CHLORPHENIRAMINE MALEATE [Concomitant]
     Active Substance: CHLORPHENIRAMINE MALEATE
     Dosage: 10 MILLIGRAM(ONGOING NOGIVEN FOR PROPHYLAXIS YES)/24-DEC-2021
     Route: 042
     Dates: end: 20211224
  44. CHLORPHENIRAMINE MALEATE [Concomitant]
     Active Substance: CHLORPHENIRAMINE MALEATE
     Dosage: 10 MILLIGRAM (ONGOING NOGIVEN FOR PROPHYLAXIS YES)/31-DEC-2021
     Route: 042
     Dates: end: 20211231
  45. CHLORPHENIRAMINE MALEATE [Concomitant]
     Active Substance: CHLORPHENIRAMINE MALEATE
     Dosage: 10 MILLIGRAM (ONGOING NOGIVEN FOR PROPHYLAXIS YES)/10-DEC-2021
     Route: 042
     Dates: end: 20211210
  46. CHLORPHENIRAMINE MALEATE [Concomitant]
     Active Substance: CHLORPHENIRAMINE MALEATE
     Dosage: 10 MILLIGRAM/14-JAN-2022
     Route: 042
     Dates: end: 20220114
  47. CHLORPHENIRAMINE MALEATE [Concomitant]
     Active Substance: CHLORPHENIRAMINE MALEATE
     Dosage: 10 MILLIGRAM/21-JAN-2022
     Route: 042
     Dates: end: 20220121
  48. CHLORPHENIRAMINE MALEATE [Concomitant]
     Active Substance: CHLORPHENIRAMINE MALEATE
     Dosage: 10 MILLIGRAM/25-FEB-2022
     Route: 065
     Dates: end: 20220225
  49. CHLORPHENIRAMINE MALEATE [Concomitant]
     Active Substance: CHLORPHENIRAMINE MALEATE
     Dosage: 10 MILLIGRAM/04-MAR-2022
     Route: 065
     Dates: end: 20220304
  50. METOPROLOL [Concomitant]
     Active Substance: METOPROLOL
     Indication: Sinus tachycardia
     Dosage: UNK, QD
     Route: 065
     Dates: start: 20211112, end: 20211112
  51. BISOPROLOL [Concomitant]
     Active Substance: BISOPROLOL
     Indication: Sinus tachycardia
     Dosage: 18-NOV-2021
     Route: 065
  52. BISOPROLOL [Concomitant]
     Active Substance: BISOPROLOL
     Dosage: 13-NOV-2021
     Route: 065
     Dates: end: 20211116
  53. ZARXIO [Concomitant]
     Active Substance: FILGRASTIM-SNDZ
     Indication: Prophylaxis
     Dosage: ONGOING: NO
     Route: 065
     Dates: start: 20211107, end: 20211109
  54. CHOLECALCIFEROL [Concomitant]
     Active Substance: CHOLECALCIFEROL
     Dosage: ONGOING: YES
     Route: 065
     Dates: start: 20211104
  55. LASIX [Concomitant]
     Active Substance: FUROSEMIDE
     Indication: Oedema peripheral
     Dosage: ONGOING: YES/09-DEC-2021
     Route: 065
  56. PREDNISONE [Concomitant]
     Active Substance: PREDNISONE
     Dosage: ONGOING: YES
     Route: 065
     Dates: start: 20210928
  57. MYCOSTATIN [Concomitant]
     Active Substance: NYSTATIN
     Dosage: ONGOING: YES
     Route: 065
     Dates: start: 20211104
  58. FILGRASTIM [Concomitant]
     Active Substance: FILGRASTIM
     Indication: Prophylaxis
     Dosage: ONGOING: NO/01-JAN-2022
     Route: 065
     Dates: end: 20220103
  59. FILGRASTIM [Concomitant]
     Active Substance: FILGRASTIM
     Dosage: ONGOING: NO/11-DEC-2021
     Route: 065
     Dates: end: 20211212
  60. FILGRASTIM [Concomitant]
     Active Substance: FILGRASTIM
     Dosage: ONGOING: NO/06-DEC-2021
     Route: 065
     Dates: end: 20211208
  61. FILGRASTIM [Concomitant]
     Active Substance: FILGRASTIM
     Dosage: ONGOING: NO
     Route: 065
     Dates: start: 20211020, end: 20211022
  62. FILGRASTIM [Concomitant]
     Active Substance: FILGRASTIM
     Dosage: 16-JAN-2022
     Route: 065
  63. ALLOPURINOL [Concomitant]
     Active Substance: ALLOPURINOL
     Dosage: ONGOING: YES
     Route: 065
     Dates: start: 20210928
  64. ERYTHROPOIETIN [Concomitant]
     Active Substance: ERYTHROPOIETIN
     Indication: Anaemia
     Dosage: ONGOING: YES/02-DEC-2021
     Route: 065
     Dates: end: 20220303
  65. PANTOPRAZOLE SODIUM [Concomitant]
     Active Substance: PANTOPRAZOLE SODIUM
     Indication: Gastrointestinal disorder prophylaxis
     Dosage: ONGOING: YES
     Route: 065
     Dates: start: 20210928
  66. BACTRIM [Concomitant]
     Active Substance: SULFAMETHOXAZOLE\TRIMETHOPRIM
     Dosage: ONGOING: YES
     Route: 065
     Dates: start: 20211015
  67. ONDANSETRON [Concomitant]
     Active Substance: ONDANSETRON
     Dosage: 8 MILLIGRAM (ONGOING: NOGIVEN FOR PROPHYLAXIS : YES)/24-DEC-2021
     Route: 042
     Dates: end: 20211224
  68. ONDANSETRON [Concomitant]
     Active Substance: ONDANSETRON
     Dosage: 8 MILLIGRAM(ONGOING: NOGIVEN FOR PROPHYLAXIS:YES)/14-JAN-2022
     Route: 042
     Dates: end: 20220114
  69. ONDANSETRON [Concomitant]
     Active Substance: ONDANSETRON
     Dosage: 8 MILLIGRAM/25-FEB-2022
     Route: 065
     Dates: end: 20220225
  70. FENTANYL [Concomitant]
     Active Substance: FENTANYL
     Dosage: ONGOING: YES
     Route: 065
     Dates: start: 20210928
  71. FENTANYL [Concomitant]
     Active Substance: FENTANYL
     Dosage: 10-FEB-2022
     Route: 065
  72. METHYLPREDNISOLONE [Concomitant]
     Active Substance: METHYLPREDNISOLONE
     Dosage: 80 MILLIGRAM
     Route: 042
     Dates: start: 20210114, end: 20210114
  73. LYRICA [Concomitant]
     Active Substance: PREGABALIN
     Dosage: 14-FEB-2022
     Route: 065
     Dates: end: 20220303

REACTIONS (2)
  - Sinus tachycardia [Recovered/Resolved]
  - Neutropenia [Recovered/Resolved]

NARRATIVE: CASE EVENT DATE: 20211112
